FAERS Safety Report 4953284-5 (Version None)
Quarter: 2006Q1

REPORT INFORMATION
  Report Type: 
  Country: None (occurrence: None)
  Receive Date: 20060324
  Receipt Date: 20060317
  Transmission Date: 20060701
  Serious: Yes (Other)
  Sender: FDA-Public Use
  Company Number: US-BRISTOL-MYERS SQUIBB COMPANY-13319207

PATIENT
  Age: 5 Decade
  Sex: Male

DRUGS (2)
  1. ERBITUX [Suspect]
     Indication: NEOPLASM MALIGNANT
     Dosage: 100 MG/50 ML. FIRST DOSE.
     Route: 042
     Dates: start: 20060316, end: 20060316
  2. BENADRYL [Concomitant]
     Indication: PREMEDICATION
     Route: 042
     Dates: start: 20060316, end: 20060316

REACTIONS (3)
  - ERYTHEMA [None]
  - HAEMATEMESIS [None]
  - INFUSION RELATED REACTION [None]
